FAERS Safety Report 5159580-3 (Version None)
Quarter: 2006Q4

REPORT INFORMATION
  Report Type: 
  Country: None (occurrence: None)
  Receive Date: 20061129
  Receipt Date: 20061023
  Transmission Date: 20070319
  Serious: Yes (Other)
  Sender: FDA-Public Use
  Company Number: PHBS2006BE16627

PATIENT
  Age: 68 Year
  Sex: Female
  Weight: 68 kg

DRUGS (10)
  1. ZOMETA [Suspect]
     Indication: PROSTATE CANCER
     Dosage: 4 MG, EVERY 3 WEEKS
     Route: 065
     Dates: start: 20041216, end: 20060726
  2. MITOXANTRONE [Concomitant]
     Dosage: 24 MG, EVERY 3 WEEKS
     Route: 065
  3. ZOLADEX [Concomitant]
     Dosage: 1 DF, EVERY 84 DAYS
     Route: 058
  4. CASODEX [Concomitant]
     Dosage: DAILY
     Route: 065
  5. ZESTRIL [Concomitant]
     Route: 065
  6. MOXON [Concomitant]
     Route: 065
  7. LIPITOR [Concomitant]
     Route: 065
  8. ASAFLOW [Concomitant]
     Route: 065
  9. CELEBREX [Concomitant]
     Route: 065
  10. EMCONCOR [Concomitant]
     Route: 065

REACTIONS (1)
  - OSTEONECROSIS [None]
